FAERS Safety Report 21938450 (Version 1)
Quarter: 2023Q1

REPORT INFORMATION
  Report Type: Spontaneous
  Country: US (occurrence: US)
  Receive Date: 20230201
  Receipt Date: 20230201
  Transmission Date: 20230417
  Serious: No
  Sender: FDA-Public Use
  Company Number: US-RVL_Pharmaceuticals-USA-POI1255202200377

PATIENT

DRUGS (1)
  1. UPNEEQ [Suspect]
     Active Substance: OXYMETAZOLINE HYDROCHLORIDE
     Indication: Prescription drug used without a prescription
     Dosage: OU
     Route: 047
     Dates: start: 202211, end: 202211

REACTIONS (6)
  - Dry eye [Not Recovered/Not Resolved]
  - Eye swelling [Not Recovered/Not Resolved]
  - Eye pain [Not Recovered/Not Resolved]
  - Eye irritation [Not Recovered/Not Resolved]
  - Drug ineffective [Recovered/Resolved]
  - Off label use [Recovered/Resolved]

NARRATIVE: CASE EVENT DATE: 20221101
